FAERS Safety Report 19810152 (Version 6)
Quarter: 2021Q4

REPORT INFORMATION
  Report Type: Spontaneous
  Country: PE (occurrence: PE)
  Receive Date: 20210908
  Receipt Date: 20211105
  Transmission Date: 20220304
  Serious: Yes (Death, Other)
  Sender: FDA-Public Use
  Company Number: PE-BOEHRINGERINGELHEIM-2021-BI-125852

PATIENT
  Age: 70 Year
  Sex: Male

DRUGS (1)
  1. NINTEDANIB [Suspect]
     Active Substance: NINTEDANIB
     Indication: Pulmonary fibrosis
     Dosage: 1 CAPSULE EVERY 12 HOURS
     Route: 065
     Dates: start: 20130101, end: 20210830

REACTIONS (5)
  - Disease progression [Fatal]
  - Myocardial infarction [Fatal]
  - Aphasia [Unknown]
  - Weight decreased [Unknown]
  - Diet refusal [Unknown]

NARRATIVE: CASE EVENT DATE: 20210101
